FAERS Safety Report 4980187-2 (Version None)
Quarter: 2006Q2

REPORT INFORMATION
  Report Type: 
  Country: None (occurrence: None)
  Receive Date: 20060424
  Receipt Date: 20041122
  Transmission Date: 20061013
  Serious: Yes (Other)
  Sender: FDA-Public Use
  Company Number: 2004AC00874

PATIENT
  Age: 72 Year
  Sex: Male

DRUGS (1)
  1. ZESTRIL [Suspect]
     Indication: HYPERTENSION
     Route: 048

REACTIONS (1)
  - PITYRIASIS ROSEA [None]
